FAERS Safety Report 15730929 (Version 1)
Quarter: 2018Q4

REPORT INFORMATION
  Report Type: Spontaneous
  Country: US (occurrence: US)
  Receive Date: 20181217
  Receipt Date: 20181217
  Transmission Date: 20190205
  Serious: Yes (Hospitalization)
  Sender: FDA-Public Use
  Company Number: None

PATIENT
  Age: 61 Year
  Sex: Male
  Weight: 114.75 kg

DRUGS (4)
  1. LOSARATAN 100MG [Concomitant]
     Dates: start: 20170701, end: 20181217
  2. SPRYCEL [Suspect]
     Active Substance: DASATINIB
     Indication: LEUKAEMIA
     Route: 048
     Dates: start: 19700629, end: 20181119
  3. GLIMEPIRIDE 2MG [Concomitant]
     Active Substance: GLIMEPIRIDE
     Dates: start: 20170701, end: 20181217
  4. FUROSEMIDE 40MG [Concomitant]
     Active Substance: FUROSEMIDE
     Dates: start: 20170701, end: 20181217

REACTIONS (1)
  - Pulmonary oedema [None]

NARRATIVE: CASE EVENT DATE: 20181128
